FAERS Safety Report 13452876 (Version 1)
Quarter: 2017Q2

REPORT INFORMATION
  Report Type: Spontaneous
  Country: CA (occurrence: CA)
  Receive Date: 20170418
  Receipt Date: 20170418
  Transmission Date: 20170830
  Serious: No
  Sender: FDA-Public Use
  Company Number: CA-LPDUSPRD-20170129

PATIENT

DRUGS (1)
  1. DEXIRON (IRON DEXTRAN INJECTION, USP) (0234C) [Suspect]
     Active Substance: IRON DEXTRAN
     Dosage: 1ML
     Route: 030

REACTIONS (2)
  - No adverse event [Unknown]
  - Drug administration error [Unknown]
